FAERS Safety Report 22366775 (Version 6)
Quarter: 2023Q4

REPORT INFORMATION
  Report Type: Report from Study
  Country: US (occurrence: US)
  Receive Date: 20230525
  Receipt Date: 20231124
  Transmission Date: 20240110
  Serious: Yes (Other)
  Sender: FDA-Public Use
  Company Number: US-SANOFI-01623527

PATIENT
  Age: 43 Year
  Sex: Female

DRUGS (1)
  1. DUPIXENT [Suspect]
     Active Substance: DUPILUMAB
     Indication: Dermatitis atopic
     Dosage: 300 MG, QOW
     Route: 058
     Dates: end: 2023

REACTIONS (24)
  - Bipolar disorder [Unknown]
  - Hallucination [Not Recovered/Not Resolved]
  - Anaphylactic reaction [Unknown]
  - Influenza [Unknown]
  - Fatigue [Unknown]
  - Skin discolouration [Unknown]
  - Palpitations [Unknown]
  - Diarrhoea [Unknown]
  - Contusion [Unknown]
  - Fungal infection [Unknown]
  - Condition aggravated [Unknown]
  - Photophobia [Not Recovered/Not Resolved]
  - Limb discomfort [Unknown]
  - Anxiety [Unknown]
  - Gastrointestinal disorder [Not Recovered/Not Resolved]
  - Hepatic function abnormal [Not Recovered/Not Resolved]
  - Heart rate increased [Unknown]
  - Throat irritation [Unknown]
  - Skin exfoliation [Unknown]
  - Helminthic infection [Unknown]
  - Vision blurred [Not Recovered/Not Resolved]
  - Pain [Unknown]
  - Rash macular [Unknown]
  - Oral herpes [Unknown]
